FAERS Safety Report 10009416 (Version 1)
Quarter: 2014Q1

REPORT INFORMATION
  Report Type: Spontaneous
  Country: GB (occurrence: GB)
  Receive Date: 20140313
  Receipt Date: 20140313
  Transmission Date: 20141002
  Serious: Yes (Other)
  Sender: FDA-Public Use
  Company Number: PHHY2014GB028359

PATIENT
  Age: 48 Year
  Sex: Male

DRUGS (8)
  1. ACETYLSALICYLIC ACID [Suspect]
     Dosage: 75 MG, QD
     Route: 048
  2. CLOPIDOGREL [Suspect]
     Dosage: 75 MG, QD
     Route: 048
  3. FLUOXETINE [Suspect]
     Dosage: 40 MG, QD
     Route: 048
  4. CHAMPIX [Suspect]
     Dosage: TITRATION PACK
     Route: 048
  5. ATORVASTATIN [Concomitant]
     Dosage: 80 MG, QD
     Route: 048
  6. BISOPROLOL [Concomitant]
     Dosage: 1.25 MG, QD
     Route: 048
  7. LANSOPRAZOLE [Concomitant]
     Dosage: 30 MG, QD
     Route: 048
  8. LOSARTAN [Concomitant]
     Dosage: 100 MG, QD
     Route: 048

REACTIONS (4)
  - Haematuria [Unknown]
  - Urinary tract infection [Unknown]
  - Pyrexia [Unknown]
  - Myalgia [Unknown]
